FAERS Safety Report 15481608 (Version 1)
Quarter: 2018Q4

REPORT INFORMATION
  Report Type: Spontaneous
  Country: US (occurrence: US)
  Receive Date: 20181010
  Receipt Date: 20181010
  Transmission Date: 20190205
  Serious: Yes (Other)
  Sender: FDA-Public Use
  Company Number: US-ROCHE-2195948

PATIENT
  Age: 39 Year
  Sex: Female

DRUGS (1)
  1. RITUXIMAB. [Suspect]
     Active Substance: RITUXIMAB
     Indication: ARTHRALGIA
     Route: 065

REACTIONS (4)
  - Haematuria [Unknown]
  - Amenorrhoea [Unknown]
  - Deafness unilateral [Unknown]
  - Atrial fibrillation [Unknown]
